FAERS Safety Report 16291978 (Version 2)
Quarter: 2020Q4

REPORT INFORMATION
  Report Type: Spontaneous
  Country: US (occurrence: US)
  Receive Date: 20190509
  Receipt Date: 20201027
  Transmission Date: 20210113
  Serious: Yes (Hospitalization, Other)
  Sender: FDA-Public Use
  Company Number: US-ASTRAZENECA-2019SE63641

PATIENT
  Age: 58 Year
  Sex: Male
  Weight: 104.3 kg

DRUGS (45)
  1. OMEPRAZOLE+SODIUM [Suspect]
     Active Substance: OMEPRAZOLE\SODIUM BICARBONATE
     Indication: GASTROOESOPHAGEAL REFLUX DISEASE
     Dosage: GENERIC
     Route: 065
     Dates: start: 2009, end: 2013
  2. ASPIRIN. [Concomitant]
     Active Substance: ASPIRIN
     Indication: DIABETES MELLITUS
     Dates: start: 2013
  3. ZYRTEC [Concomitant]
     Active Substance: CETIRIZINE HYDROCHLORIDE
     Dates: start: 20150313
  4. FOLIC ACID. [Concomitant]
     Active Substance: FOLIC ACID
     Dates: start: 20110507
  5. GLUCOPHAGE [Concomitant]
     Active Substance: METFORMIN HYDROCHLORIDE
     Dates: start: 20090911
  6. CYANOCOBALAMIN. [Concomitant]
     Active Substance: CYANOCOBALAMIN
     Indication: ANAEMIA
     Dates: start: 2013
  7. DULCOLAX NOS [Concomitant]
     Active Substance: BISACODYL OR DOCUSATE SODIUM
     Dates: start: 20100416
  8. BUPROPION. [Concomitant]
     Active Substance: BUPROPION
  9. CHLORPHENIRAMINE. [Concomitant]
     Active Substance: CHLORPHENIRAMINE
     Dates: start: 20160623
  10. COLACE [Concomitant]
     Active Substance: DOCUSATE SODIUM
     Dates: start: 20171209
  11. VITAMIN D [Concomitant]
     Active Substance: VITAMIN D NOS
  12. VITAMIN E [Concomitant]
     Active Substance: .ALPHA.-TOCOPHEROL
  13. PRILOSEC [Suspect]
     Active Substance: OMEPRAZOLE MAGNESIUM
     Indication: GASTROOESOPHAGEAL REFLUX DISEASE
     Route: 048
     Dates: start: 200901, end: 201312
  14. ZANTAC [Concomitant]
     Active Substance: RANITIDINE HYDROCHLORIDE
     Dates: start: 2013
  15. APAP/CODEINE [Concomitant]
     Active Substance: ACETAMINOPHEN\CODEINE PHOSPHATE
     Dates: start: 20120509
  16. APRODINE [Concomitant]
     Active Substance: PSEUDOEPHEDRINE HYDROCHLORIDE\TRIPROLIDINE HYDROCHLORIDE
     Dates: start: 20100416
  17. BACLOFEN. [Concomitant]
     Active Substance: BACLOFEN
  18. ERGOTAMINE/CAFFEINE [Concomitant]
     Dates: start: 20090317
  19. LEVEMIR [Concomitant]
     Active Substance: INSULIN DETEMIR
     Dates: start: 20141104
  20. LASIX [Concomitant]
     Active Substance: FUROSEMIDE
     Dates: start: 20110507
  21. NOVOLIN NOS [Concomitant]
     Active Substance: INSULIN HUMAN
     Dates: start: 20090911
  22. SIMVASTATIN. [Concomitant]
     Active Substance: SIMVASTATIN
     Dates: start: 20150314
  23. PRILOSEC [Suspect]
     Active Substance: OMEPRAZOLE MAGNESIUM
     Indication: GASTROOESOPHAGEAL REFLUX DISEASE
     Dosage: GENERIC
     Route: 065
     Dates: start: 2008, end: 20160226
  24. CYMBALTA [Concomitant]
     Active Substance: DULOXETINE HYDROCHLORIDE
     Dates: start: 20171209
  25. RIBAVIRIN. [Concomitant]
     Active Substance: RIBAVIRIN
     Dates: start: 20150314
  26. FLOMAX [Concomitant]
     Active Substance: TAMSULOSIN HYDROCHLORIDE
     Dates: start: 20170506
  27. ULTRAM [Concomitant]
     Active Substance: TRAMADOL HYDROCHLORIDE
     Dates: start: 20170506
  28. PRILOSEC [Suspect]
     Active Substance: OMEPRAZOLE MAGNESIUM
     Indication: GASTROOESOPHAGEAL REFLUX DISEASE
     Route: 048
     Dates: start: 2009, end: 2013
  29. ATENOL [Concomitant]
     Active Substance: ATENOLOL
     Indication: DIABETES MELLITUS
     Dates: start: 2013
  30. TYLENOL [Concomitant]
     Active Substance: ACETAMINOPHEN
     Dates: start: 20140818
  31. ELAVIL [Concomitant]
     Active Substance: AMITRIPTYLINE HYDROCHLORIDE
     Dates: start: 20110204
  32. CELEXA [Concomitant]
     Active Substance: CITALOPRAM HYDROBROMIDE
     Dates: start: 20120109
  33. VASOTEC [Concomitant]
     Active Substance: ENALAPRIL MALEATE
     Dates: start: 20090317
  34. NEURONTIN [Concomitant]
     Active Substance: GABAPENTIN
     Dates: start: 20110418
  35. GUAIFENESIN. [Concomitant]
     Active Substance: GUAIFENESIN
     Dates: start: 20120801
  36. HYDROCORTISONE. [Concomitant]
     Active Substance: HYDROCORTISONE
     Dates: start: 20160413
  37. LANTUS [Concomitant]
     Active Substance: INSULIN GLARGINE
     Dates: start: 20160216
  38. VITAMIN A [Concomitant]
     Active Substance: VITAMIN A
  39. AMLODIPINE [Concomitant]
     Active Substance: AMLODIPINE BESYLATE
     Indication: HYPERTENSION
     Dates: start: 2013
  40. LIPITOR [Concomitant]
     Active Substance: ATORVASTATIN CALCIUM
  41. FLUOCINONIDE. [Concomitant]
     Active Substance: FLUOCINONIDE
     Dates: start: 20140925
  42. GLUCOTROL [Concomitant]
     Active Substance: GLIPIZIDE
     Dates: start: 20120801
  43. HUMULIN NOS [Concomitant]
     Active Substance: INSULIN HUMAN
     Dates: start: 20160413
  44. LORATADINE. [Concomitant]
     Active Substance: LORATADINE
     Dates: start: 20141104
  45. FISH OIL [Concomitant]
     Active Substance: FISH OIL
     Dates: start: 20140925

REACTIONS (2)
  - Chronic kidney disease [Not Recovered/Not Resolved]
  - Renal failure [Unknown]

NARRATIVE: CASE EVENT DATE: 2011
